FAERS Safety Report 24169775 (Version 2)
Quarter: 2024Q3

REPORT INFORMATION
  Report Type: Spontaneous
  Country: US (occurrence: US)
  Receive Date: 20240803
  Receipt Date: 20240922
  Transmission Date: 20241016
  Serious: No
  Sender: GLAXOSMITHKLINE
  Company Number: US-GSKCCFUS-Case-02063457_AE-114186

PATIENT
  Sex: Male

DRUGS (1)
  1. INCRUSE ELLIPTA [Suspect]
     Active Substance: UMECLIDINIUM BROMIDE
     Indication: Product used for unknown indication
     Dosage: UNK

REACTIONS (6)
  - Insomnia [Unknown]
  - Wheezing [Unknown]
  - Nasal congestion [Unknown]
  - Productive cough [Unknown]
  - Drug ineffective [Unknown]
  - Product complaint [Unknown]
